FAERS Safety Report 13764156 (Version 2)
Quarter: 2018Q1

REPORT INFORMATION
  Report Type: Spontaneous
  Country: US (occurrence: US)
  Receive Date: 20170718
  Receipt Date: 20180115
  Transmission Date: 20180508
  Serious: No
  Sender: FDA-Public Use
  Company Number: US-VANDA PHARMACEUTICALS, INC-2017TASUS001689

PATIENT
  Sex: Female

DRUGS (1)
  1. HETLIOZ [Suspect]
     Active Substance: TASIMELTEON
     Indication: PRODUCT USED FOR UNKNOWN INDICATION
     Dosage: 20 MG, Q24HRS 1 HOUR BEFORE BEDTIME
     Route: 048
     Dates: start: 20160907

REACTIONS (3)
  - Insomnia [Unknown]
  - Drug effect decreased [Unknown]
  - Middle insomnia [Unknown]
